FAERS Safety Report 4978399-7 (Version None)
Quarter: 2006Q2

REPORT INFORMATION
  Report Type: 
  Country: None (occurrence: None)
  Receive Date: 20060414
  Receipt Date: 20060407
  Transmission Date: 20061013
  Serious: Yes (Death, Life-Threatening, Hospitalization)
  Sender: FDA-Public Use
  Company Number: FRP05000631

PATIENT
  Age: 76 Year
  Sex: Female
  Weight: 58 kg

DRUGS (5)
  1. ACTONEL [Suspect]
     Dosage: 35 MG, 1 /WEEK, ORAL
     Route: 048
     Dates: start: 20020415
  2. SPECIAFOLDINE (FOLIC ACID) [Suspect]
     Dosage: 5 MG, 1 /WEEK, ORAL
     Route: 048
     Dates: start: 20010925
  3. METHOTREXATE [Suspect]
     Dosage: 7.5 MG, 1 /WEEK, ORAL
     Route: 048
     Dates: start: 20010925
  4. REMICADE [Suspect]
     Indication: RHEUMATOID ARTHRITIS
     Dosage: IV NOS
     Route: 042
     Dates: start: 20010925
  5. VITAMIN D [Concomitant]

REACTIONS (1)
  - LYMPHOMA [None]
